FAERS Safety Report 5372297-5 (Version None)
Quarter: 2007Q2

REPORT INFORMATION
  Report Type: 
  Country: None (occurrence: None)
  Receive Date: 20070627
  Receipt Date: 20070618
  Transmission Date: 20071010
  Serious: Yes (Hospitalization)
  Sender: FDA-Public Use
  Company Number: US-AMGEN-STX226212

PATIENT
  Sex: Female
  Weight: 53.1 kg

DRUGS (18)
  1. ENBREL [Suspect]
     Indication: RHEUMATOID ARTHRITIS
     Route: 058
     Dates: start: 20030722, end: 20061031
  2. PREDNISONE TAB [Concomitant]
  3. METHOTREXATE [Concomitant]
  4. FOLIC ACID [Concomitant]
  5. SULINDAC [Concomitant]
  6. MAGNESIUM SULFATE [Concomitant]
  7. CALCIUM CHLORIDE [Concomitant]
  8. SYNTHROID [Concomitant]
  9. CLARITIN [Concomitant]
  10. LOPRESSOR [Concomitant]
  11. LANTUS [Concomitant]
     Route: 058
  12. NOVOLOG [Concomitant]
  13. LASIX [Concomitant]
  14. POTASSIUM ACETATE [Concomitant]
  15. AMBIEN [Concomitant]
  16. PRILOSEC [Concomitant]
  17. MOTRIN [Concomitant]
  18. TYLENOL [Concomitant]

REACTIONS (3)
  - BETA HAEMOLYTIC STREPTOCOCCAL INFECTION [None]
  - HYPOTENSION [None]
  - NECROTISING FASCIITIS [None]
